FAERS Safety Report 10177572 (Version 1)
Quarter: 2014Q2

REPORT INFORMATION
  Report Type: Report from Study
  Country: NO (occurrence: NO)
  Receive Date: 20140516
  Receipt Date: 20140516
  Transmission Date: 20141212
  Serious: Yes (Death, Other)
  Sender: FDA-Public Use
  Company Number: NO-BAXTER-2014BAX024627

PATIENT
  Age: 46 Year
  Sex: Male

DRUGS (12)
  1. SENDOXAN 1000 MG PULVER TIL INJEKSJONSV?SKE, OPPL?SNING [Suspect]
     Indication: NON-HODGKIN^S LYMPHOMA
     Dosage: ON DAYS 15,22,29
     Route: 042
  2. PREDNISONE [Suspect]
     Indication: NON-HODGKIN^S LYMPHOMA
     Dosage: ON DAYS 1-29, TAPER TO DAY 35
     Route: 048
  3. PREDNISONE [Suspect]
     Route: 037
  4. VINCRISTINE [Suspect]
     Indication: NON-HODGKIN^S LYMPHOMA
     Dosage: MAX OF 2.0 MG ON DAYS 1,8,15,22,29
     Route: 042
  5. L-ASPARAGINASE [Suspect]
     Indication: NON-HODGKIN^S LYMPHOMA
     Dosage: ON DAYS 8,15,22
     Route: 042
  6. DAUNORUBICIN [Suspect]
     Indication: NON-HODGKIN^S LYMPHOMA
     Dosage: ON DAYS 43,45,47
     Route: 042
  7. CYTARABINE [Suspect]
     Indication: NON-HODGKIN^S LYMPHOMA
     Dosage: ON DAYS 43-47
     Route: 042
  8. CYTARABINE [Suspect]
     Dosage: ON DAYS 78,92,106
     Route: 037
  9. 6-THIOGUANINE [Suspect]
     Indication: NON-HODGKIN^S LYMPHOMA
     Dosage: ON DAYS 43-47
     Route: 042
  10. 6-MERCAPTOPURINE MONOHYDRATE [Suspect]
     Indication: NON-HODGKIN^S LYMPHOMA
     Dosage: ON DAYS 64-111
     Route: 048
  11. METHOTREXATE [Suspect]
     Indication: NON-HODGKIN^S LYMPHOMA
     Dosage: ON DAYS 64,78
     Route: 042
  12. METHOTREXATE [Suspect]
     Dosage: ON DAYS 15,29,43,64
     Route: 037

REACTIONS (3)
  - Haematotoxicity [Unknown]
  - Febrile neutropenia [Unknown]
  - Death [Fatal]
